FAERS Safety Report 25842813 (Version 1)
Quarter: 2025Q3

REPORT INFORMATION
  Report Type: Spontaneous
  Country: US (occurrence: US)
  Receive Date: 20250924
  Receipt Date: 20250924
  Transmission Date: 20251021
  Serious: No
  Sender: XCOVERY HOLDINGS
  Company Number: US-XCO-202500121

PATIENT
  Age: 48 Year
  Sex: Female

DRUGS (2)
  1. ENSACOVE [Suspect]
     Active Substance: ENSARTINIB HYDROCHLORIDE
     Route: 048
     Dates: start: 20250822
  2. ENSACOVE [Suspect]
     Active Substance: ENSARTINIB HYDROCHLORIDE
     Route: 065

REACTIONS (2)
  - Oedema [Unknown]
  - Pruritus [Unknown]
